FAERS Safety Report 7511420-0 (Version None)
Quarter: 2011Q2

REPORT INFORMATION
  Report Type: 
  Country: None (occurrence: None)
  Receive Date: 20110531
  Receipt Date: 20110518
  Transmission Date: 20111010
  Serious: Yes (Other)
  Sender: FDA-Public Use
  Company Number: PHHY2009IE56683

PATIENT

DRUGS (18)
  1. CLOZARIL [Suspect]
     Dosage: 175 MG NOCTE AND 25 MG MANE
     Route: 048
     Dates: start: 20090612
  2. CLOZARIL [Suspect]
     Dosage: 20 MG, OD
     Route: 048
  3. AMISULPRIDE [Suspect]
     Indication: PSYCHOTIC DISORDER
     Dosage: 50 MG, BID
     Dates: start: 20090101
  4. OMACOR [Concomitant]
     Dosage: 2 OD
     Route: 048
  5. LAMOTRIGINE [Concomitant]
     Dosage: 100 MG, BID
     Route: 048
  6. LEVOTHYROXINE SODIUM [Concomitant]
     Indication: HYPERTHYROIDISM
     Dosage: 125 MG, QD
  7. ALLOPURINOL [Concomitant]
     Indication: GOUT
     Dosage: 200 MG, OD
     Route: 048
     Dates: start: 20090101
  8. MIRTAZAPINE [Concomitant]
     Indication: DEPRESSED MOOD
     Dosage: 45 MG, QD
     Route: 048
     Dates: start: 20090101
  9. CALCICHEW D3 [Concomitant]
     Dosage: 2 OD
  10. DIAZEPAM [Concomitant]
     Dosage: 5 MG, TID
     Route: 048
  11. CLOZARIL [Suspect]
     Indication: SCHIZOPHRENIA
     Dosage: 175 MG/DAY
     Dates: start: 20090201
  12. ATORVASTATIN [Concomitant]
     Indication: BLOOD CHOLESTEROL INCREASED
     Dosage: 45 MG, QD
  13. DULOXETINE HYDROCHLORIDE [Concomitant]
     Indication: DEPRESSED MOOD
     Dosage: 120 MG, QD
     Dates: start: 20090101
  14. PROPRANOLOL [Concomitant]
     Dosage: 100 MG, QD
  15. DIAZEPAM [Concomitant]
     Dosage: 3 MG, NOCTE
     Route: 048
  16. ISTIN [Concomitant]
     Indication: HYPERTENSION
     Dosage: 5 MG, QD
     Route: 048
     Dates: start: 20090101
  17. ZOLPIDEM TARTRATE [Concomitant]
     Dosage: 20 MG
     Route: 048
  18. LEVOTHYROXINE SODIUM [Concomitant]
     Dates: start: 20090101

REACTIONS (1)
  - BREAST CANCER [None]
